FAERS Safety Report 6694399 (Version 3)
Quarter: 2020Q3

REPORT INFORMATION
  Report Type: Report from Study
  Country: US (occurrence: US)
  Receive Date: 20080709
  Receipt Date: 20080911
  Transmission Date: 20201105
  Serious: Yes (Death, Hospitalization)
  Sender: FDA-Public Use
  Company Number: US-ROCHE-573923

PATIENT
  Age: 82 Year
  Sex: Female
  Weight: 75.8 kg

DRUGS (5)
  1. UNSPECIFIED INGREDIENT [Concomitant]
     Active Substance: UNSPECIFIED INGREDIENT
     Dosage: DRUG REPORTED AS CHOLESTEROL MEDICATION
  2. POTASSIUM [Concomitant]
     Active Substance: POTASSIUM
  3. UNSPECIFIED INGREDIENT [Concomitant]
     Active Substance: UNSPECIFIED INGREDIENT
     Indication: BLOOD PRESSURE MEASUREMENT
  4. PROMETHAZINE [Concomitant]
     Active Substance: PROMETHAZINE HYDROCHLORIDE
  5. IBANDRONIC ACID. [Suspect]
     Active Substance: IBANDRONIC ACID
     Indication: OSTEOPOROSIS
     Route: 048
     Dates: start: 20061128, end: 20070307

REACTIONS (7)
  - Gastritis [Unknown]
  - Duodenitis [Unknown]
  - Oesophagitis [Unknown]
  - Hiatus hernia [Unknown]
  - Gastrooesophageal reflux disease [Unknown]
  - Sudden death [Fatal]
  - Cardiac disorder [Fatal]

NARRATIVE: CASE EVENT DATE: 20071128
